FAERS Safety Report 15748389 (Version 1)
Quarter: 2018Q4

REPORT INFORMATION
  Report Type: Spontaneous
  Country: US (occurrence: US)
  Receive Date: 20181221
  Receipt Date: 20181221
  Transmission Date: 20190205
  Serious: No
  Sender: FDA-Public Use
  Company Number: US-GLAXOSMITHKLINE-US2018GSK226556

PATIENT
  Sex: Male

DRUGS (1)
  1. NICORETTE SPEARMINT BURST [Suspect]
     Active Substance: NICOTINE
     Indication: PRODUCT USED FOR UNKNOWN INDICATION
     Dosage: UNK, 1 PIECE EVERY ONE TWO HOURS

REACTIONS (1)
  - Nausea [Unknown]
